FAERS Safety Report 5218086-3 (Version None)
Quarter: 2007Q1

REPORT INFORMATION
  Report Type: 
  Country: None (occurrence: None)
  Receive Date: 20061130
  Receipt Date: 20060620
  Transmission Date: 20070707
  Serious: Yes (Hospitalization)
  Sender: FDA-Public Use
  Company Number: US200605004093

PATIENT
  Age: 33 Year
  Sex: Male
  Weight: 158.7 kg

DRUGS (4)
  1. ZYPREXA [Suspect]
     Dosage: SEE IMAGE
     Dates: start: 19961001, end: 19980701
  2. ZYPREXA [Suspect]
     Dosage: SEE IMAGE
     Dates: start: 19970701, end: 19980701
  3. ZYPREXA [Suspect]
     Dosage: SEE IMAGE
     Dates: start: 19980801, end: 19990601
  4. ZYPREXA [Suspect]
     Dosage: SEE IMAGE
     Dates: start: 19990601, end: 20030101

REACTIONS (9)
  - BLOOD GLUCOSE INCREASED [None]
  - DEHYDRATION [None]
  - DIABETES MELLITUS [None]
  - GLYCOSURIA [None]
  - HYPERTENSION [None]
  - KETONURIA [None]
  - OBESITY [None]
  - PRESCRIBED OVERDOSE [None]
  - WEIGHT INCREASED [None]
